FAERS Safety Report 6024898-9 (Version None)
Quarter: 2008Q4

REPORT INFORMATION
  Report Type: 
  Country: None (occurrence: None)
  Receive Date: 20081222
  Receipt Date: 20080918
  Transmission Date: 20090506
  Serious: No
  Sender: FDA-Public Use
  Company Number: ALL1-2008-02677

PATIENT
  Age: 12 Year
  Sex: Female
  Weight: 45.4 kg

DRUGS (5)
  1. VYVANSE [Suspect]
     Indication: ATTENTION DEFICIT/HYPERACTIVITY DISORDER
     Dosage: 50 MG, 1X/DAY:QD, ORAL
     Route: 048
     Dates: start: 20070901, end: 20070901
  2. SEROQUEL [Concomitant]
  3. CYMBALTA [Concomitant]
  4. LAMICTAL [Concomitant]
  5. NEXIUM [Concomitant]

REACTIONS (2)
  - AGGRESSION [None]
  - IRRITABILITY [None]
